FAERS Safety Report 21096757 (Version 1)
Quarter: 2022Q3

REPORT INFORMATION
  Report Type: Spontaneous
  Country: US (occurrence: US)
  Receive Date: 20220718
  Receipt Date: 20220718
  Transmission Date: 20221026
  Serious: No
  Sender: FDA-Public Use
  Company Number: US-PADAGIS-2022PAD00102

PATIENT

DRUGS (1)
  1. AZELASTINE HYDROCHLORIDE [Suspect]
     Active Substance: AZELASTINE HYDROCHLORIDE
     Indication: Product used for unknown indication
     Dosage: 4 SPRAYS A DAY
     Route: 045

REACTIONS (3)
  - Product packaging quantity issue [Unknown]
  - Incorrect dose administered [Unknown]
  - Product dose omission issue [Unknown]
